FAERS Safety Report 21958820 (Version 1)
Quarter: 2023Q1

REPORT INFORMATION
  Report Type: Spontaneous
  Country: US (occurrence: US)
  Receive Date: 20230206
  Receipt Date: 20230206
  Transmission Date: 20230417
  Serious: No
  Sender: FDA-Public Use
  Company Number: US-AERIE-2022-002567

PATIENT

DRUGS (2)
  1. RHOPRESSA [Suspect]
     Active Substance: NETARSUDIL MESYLATE
     Indication: Glaucoma
     Dosage: UNK
     Route: 047
  2. DUPIXENT [Suspect]
     Active Substance: DUPILUMAB
     Indication: Dermatitis atopic
     Dosage: UNK UNK,
     Route: 058
     Dates: start: 20210203

REACTIONS (2)
  - Conjunctival hyperaemia [Not Recovered/Not Resolved]
  - Drug interaction [Unknown]
